FAERS Safety Report 5827540-2 (Version None)
Quarter: 2008Q3

REPORT INFORMATION
  Report Type: 
  Country: None (occurrence: None)
  Receive Date: 20080730
  Receipt Date: 20080717
  Transmission Date: 20090109
  Serious: Yes (Hospitalization)
  Sender: FDA-Public Use
  Company Number: GB-ASTRAZENECA-2008GB01306

PATIENT
  Age: 28262 Day
  Sex: Male
  Weight: 86.6 kg

DRUGS (6)
  1. SEROQUEL [Suspect]
     Indication: PARANOIA
     Route: 048
     Dates: start: 20080131
  2. SEROQUEL [Suspect]
     Indication: JEALOUS DELUSION
     Route: 048
     Dates: start: 20080131
  3. SEROQUEL [Suspect]
     Route: 048
     Dates: start: 20080321, end: 20080708
  4. SEROQUEL [Suspect]
     Route: 048
     Dates: start: 20080321, end: 20080708
  5. MIRTAZAPINE [Concomitant]
     Indication: DEPRESSION
     Route: 048
     Dates: start: 20080221, end: 20080711
  6. ACETAMINOPHEN [Concomitant]
     Indication: PERIARTHRITIS
     Route: 048
     Dates: start: 20080131

REACTIONS (3)
  - ATRIAL HYPERTROPHY [None]
  - ELECTROCARDIOGRAM QT PROLONGED [None]
  - VENTRICULAR HYPERTROPHY [None]
